FAERS Safety Report 21977829 (Version 1)
Quarter: 2023Q1

REPORT INFORMATION
  Report Type: Spontaneous
  Country: CN (occurrence: CN)
  Receive Date: 20230210
  Receipt Date: 20230210
  Transmission Date: 20230418
  Serious: Yes (Other)
  Sender: FDA-Public Use
  Company Number: CN-MYLANLABS-2023M1015661

PATIENT
  Age: 28 Year
  Sex: Male

DRUGS (1)
  1. VIAGRA [Suspect]
     Active Substance: SILDENAFIL CITRATE
     Indication: Erectile dysfunction
     Dosage: 200 MILLIGRAM, QD
     Route: 048

REACTIONS (2)
  - Retinal toxicity [Not Recovered/Not Resolved]
  - Overdose [Not Recovered/Not Resolved]
